FAERS Safety Report 4337930-5 (Version None)
Quarter: 2004Q1

REPORT INFORMATION
  Report Type: 
  Country: None (occurrence: None)
  Receive Date: 20040329
  Receipt Date: 20040127
  Transmission Date: 20041129
  Serious: No
  Sender: FDA-Public Use
  Company Number: USA040157688

PATIENT
  Age: 3 Year
  Sex: Female
  Weight: 13 kg

DRUGS (4)
  1. ZYPREXA [Suspect]
     Indication: ABNORMAL BEHAVIOUR
     Dosage: 1.25 MG/IN THE EVENING
     Dates: start: 20031201, end: 20040125
  2. ZYPREXA [Suspect]
     Indication: SLEEP DISORDER
     Dosage: 1.25 MG/IN THE EVENING
     Dates: start: 20031201, end: 20040125
  3. STRATTERA [Suspect]
     Indication: ABNORMAL BEHAVIOUR
     Dosage: 10 MG
  4. STRATTERA [Suspect]
     Indication: PSYCHOMOTOR HYPERACTIVITY
     Dosage: 10 MG

REACTIONS (2)
  - SWELLING FACE [None]
  - WEIGHT INCREASED [None]
